FAERS Safety Report 24994546 (Version 1)
Quarter: 2025Q1

REPORT INFORMATION
  Report Type: Spontaneous
  Country: US (occurrence: US)
  Receive Date: 20250221
  Receipt Date: 20250221
  Transmission Date: 20250408
  Serious: No
  Sender: EISAI
  Company Number: US-Eisai-EC-2025-183235

PATIENT
  Age: 77 Year
  Sex: Male

DRUGS (1)
  1. LEQEMBI [Suspect]
     Active Substance: LECANEMAB-IRMB
     Indication: Dementia Alzheimer^s type
     Dates: start: 20250116, end: 20250116

REACTIONS (4)
  - Nausea [Not Recovered/Not Resolved]
  - Dysphagia [Not Recovered/Not Resolved]
  - Hallucination [Not Recovered/Not Resolved]
  - Weight decreased [Not Recovered/Not Resolved]

NARRATIVE: CASE EVENT DATE: 20250118
